FAERS Safety Report 5675372-0 (Version None)
Quarter: 2008Q1

REPORT INFORMATION
  Report Type: 
  Country: None (occurrence: None)
  Receive Date: 20080320
  Receipt Date: 20080313
  Transmission Date: 20080703
  Serious: No
  Sender: FDA-Public Use
  Company Number: FR-BOEHRINGER INGELHEIM GMBH, GERMANY-2008-FF-00124FF

PATIENT
  Sex: Female
  Weight: 58 kg

DRUGS (3)
  1. SPIRIVA [Suspect]
     Indication: CHRONIC OBSTRUCTIVE PULMONARY DISEASE
     Route: 055
     Dates: start: 20071029, end: 20071102
  2. GAVISCON [Concomitant]
     Indication: GASTRITIS
     Route: 048
     Dates: start: 20071029
  3. NEXIUM [Concomitant]
     Indication: GASTRITIS
     Route: 048
     Dates: start: 20071029

REACTIONS (2)
  - ANGIOEDEMA [None]
  - URTICARIA [None]
